FAERS Safety Report 16309168 (Version 8)
Quarter: 2019Q3

REPORT INFORMATION
  Report Type: Report from Study
  Country: US (occurrence: US)
  Receive Date: 20190514
  Receipt Date: 20190830
  Transmission Date: 20191004
  Serious: Yes (Other)
  Sender: FDA-Public Use
  Company Number: US-PFIZER INC-2019183793

PATIENT
  Age: 64 Year
  Sex: Female

DRUGS (3)
  1. IBRANCE [Suspect]
     Active Substance: PALBOCICLIB
     Dosage: 75 MG, CYCLIC (21 DAYS ON/7 DAY OFF)
     Route: 048
     Dates: start: 2019, end: 20190521
  2. IBRANCE [Suspect]
     Active Substance: PALBOCICLIB
     Indication: BREAST CANCER FEMALE
     Dosage: 75 MG, CYCLIC [21 DAYS ON/7 DAYS OFF]
     Route: 048
     Dates: start: 20190422, end: 2019
  3. IBRANCE [Suspect]
     Active Substance: PALBOCICLIB
     Dosage: 75 MG, CYCLIC (21 DAYS ON/7 DAY OFF)
     Route: 048
     Dates: start: 2019, end: 2019

REACTIONS (14)
  - Hot flush [Recovering/Resolving]
  - Constipation [Not Recovered/Not Resolved]
  - Night sweats [Unknown]
  - Hepatic enzyme increased [Recovered/Resolved]
  - Abdominal discomfort [Not Recovered/Not Resolved]
  - Headache [Recovering/Resolving]
  - Feeling abnormal [Recovered/Resolved]
  - Pollakiuria [Unknown]
  - Fatigue [Recovering/Resolving]
  - Diarrhoea [Not Recovered/Not Resolved]
  - Renal impairment [Recovered/Resolved]
  - Dyschezia [Recovered/Resolved]
  - Second primary malignancy [Unknown]
  - Bladder neoplasm [Unknown]

NARRATIVE: CASE EVENT DATE: 2019
